FAERS Safety Report 8895865 (Version 3)
Quarter: 2015Q3

REPORT INFORMATION
  Report Type: Spontaneous
  Country: US (occurrence: US)
  Receive Date: 20121107
  Receipt Date: 20150730
  Transmission Date: 20151125
  Serious: No
  Sender: FDA-Public Use
  Company Number: US-ASTRAZENECA-2012SE76543

PATIENT
  Age: 41 Year
  Sex: Female

DRUGS (8)
  1. MONOCYCLINE [Concomitant]
  2. EFFEXOR XR [Concomitant]
     Active Substance: VENLAFAXINE HYDROCHLORIDE
  3. SEASONIQUE [Concomitant]
     Active Substance: ETHINYL ESTRADIOL\LEVONORGESTREL
  4. SYNTHROID [Concomitant]
     Active Substance: LEVOTHYROXINE SODIUM
  5. LEXAPO [Concomitant]
  6. PREVACID [Concomitant]
     Active Substance: LANSOPRAZOLE
  7. CAPRELSA [Suspect]
     Active Substance: VANDETANIB
     Indication: THYROID CANCER
     Route: 048
     Dates: start: 20120922
  8. TOPROL XL [Suspect]
     Active Substance: METOPROLOL SUCCINATE
     Route: 048

REACTIONS (8)
  - Feeling abnormal [Unknown]
  - Fatigue [Unknown]
  - Nausea [Unknown]
  - Blister [Unknown]
  - Chest discomfort [Unknown]
  - Rash pruritic [Unknown]
  - Diarrhoea [Unknown]
  - Oropharyngeal pain [Unknown]
